FAERS Safety Report 9714329 (Version 2)
Quarter: 2013Q4

REPORT INFORMATION
  Report Type: Report from Study
  Country: US (occurrence: US)
  Receive Date: 20131126
  Receipt Date: 20131126
  Transmission Date: 20140711
  Serious: Yes (Hospitalization, Other)
  Sender: FDA-Public Use
  Company Number: US-ABBVIE-13P-163-1129743-00

PATIENT
  Age: 57 Year
  Sex: Female
  Weight: 79.45 kg

DRUGS (23)
  1. HUMIRA [Suspect]
     Indication: ANKYLOSING SPONDYLITIS
     Dates: start: 201209, end: 20130213
  2. HUMIRA [Suspect]
  3. METHOTREXATE [Concomitant]
     Indication: PRODUCT USED FOR UNKNOWN INDICATION
     Dosage: 25 MG-0.3 ML
  4. METHOTREXATE [Concomitant]
     Dates: start: 20120120
  5. LINZESS [Concomitant]
     Indication: GASTROINTESTINAL DISORDER
  6. CLONIDINE [Concomitant]
     Indication: PRODUCT USED FOR UNKNOWN INDICATION
     Dosage: PATCH CHANGED WEEKLY
  7. CITALOPRAM [Concomitant]
     Indication: PRODUCT USED FOR UNKNOWN INDICATION
  8. ALBUTEROL [Concomitant]
     Indication: PRODUCT USED FOR UNKNOWN INDICATION
  9. VERAPAMIL [Concomitant]
     Indication: PRODUCT USED FOR UNKNOWN INDICATION
  10. TIZANIDINE [Concomitant]
     Indication: PRODUCT USED FOR UNKNOWN INDICATION
     Dosage: 1 TAB IN AM AND 1-2 TABS AT BEDTIME
  11. PERCOCET [Concomitant]
     Indication: PAIN
     Dosage: 10/325 MG FOUR IN ONE DAY, AS REQUIRED
  12. PERCOCET [Concomitant]
     Indication: ANKYLOSING SPONDYLITIS
     Dosage: 10/650 MG FOUR IN ONE DAY, AS REQUIRED
     Dates: start: 20131104
  13. METOPROLOL [Concomitant]
     Indication: PRODUCT USED FOR UNKNOWN INDICATION
  14. MORPHINE [Concomitant]
     Indication: PRODUCT USED FOR UNKNOWN INDICATION
  15. FOLIC ACID [Concomitant]
     Indication: ANKYLOSING SPONDYLITIS
     Dates: start: 20120817
  16. AMBIEN [Concomitant]
     Indication: PRODUCT USED FOR UNKNOWN INDICATION
     Dosage: AT BEDTIME
  17. LORAZEPAM [Concomitant]
     Indication: PRODUCT USED FOR UNKNOWN INDICATION
     Dosage: AS REQUIRED
  18. ONDANSETRON [Concomitant]
     Indication: PRODUCT USED FOR UNKNOWN INDICATION
     Dosage: AS REQUIRED
  19. PREDNISONE [Concomitant]
     Indication: ANKYLOSING SPONDYLITIS
     Dates: start: 20130731
  20. PANTOPRAZOLE [Concomitant]
     Indication: PRODUCT USED FOR UNKNOWN INDICATION
  21. VITAMIN B12 [Concomitant]
     Indication: PRODUCT USED FOR UNKNOWN INDICATION
  22. NYSTATIN [Concomitant]
     Indication: PRODUCT USED FOR UNKNOWN INDICATION
     Dosage: 100000 UNIT/ML SUSPENSION SWISH AND SWALLOW, QS, 10DAYS
     Dates: start: 20131004
  23. METHOTREXATE SODIUM [Concomitant]
     Indication: LEUKOCYTE ANTIGEN B-27 POSITIVE
     Dosage: 0.6ML OR 15MG, QS, 30 DAYS
     Route: 058
     Dates: start: 20120215

REACTIONS (4)
  - Post procedural complication [Unknown]
  - Gallbladder operation [Not Recovered/Not Resolved]
  - Tooth infection [Recovering/Resolving]
  - Gingivitis [Recovering/Resolving]
